FAERS Safety Report 4382534-1 (Version None)
Quarter: 2004Q2

REPORT INFORMATION
  Report Type: 
  Country: None (occurrence: None)
  Receive Date: 20040602
  Receipt Date: 20040524
  Transmission Date: 20050107
  Serious: Yes (Other)
  Sender: FDA-Public Use
  Company Number: 200410231BFR

PATIENT
  Age: 8 Year
  Sex: Male
  Weight: 23 kg

DRUGS (14)
  1. KOGENATE FS [Suspect]
     Indication: FACTOR VIII DEFICIENCY
     Dosage: SEE IMAGE
     Dates: start: 20040115
  2. KOGENATE FS [Suspect]
     Indication: FACTOR VIII DEFICIENCY
     Dosage: SEE IMAGE
     Dates: start: 20040409
  3. KOGENATE FS [Suspect]
     Indication: FACTOR VIII DEFICIENCY
     Dosage: SEE IMAGE
     Dates: start: 20040412
  4. KOGENATE FS [Suspect]
     Indication: FACTOR VIII DEFICIENCY
     Dosage: SEE IMAGE
     Dates: start: 20040413
  5. KOGENATE FS [Suspect]
     Dates: end: 20040408
  6. KOGENATE FS [Suspect]
     Dates: start: 20040415
  7. KOGENATE FS [Suspect]
     Dates: start: 20040417
  8. KOGENATE FS [Suspect]
     Dates: start: 20040419
  9. KOGENATE FS [Suspect]
     Dates: start: 20040421
  10. KOGENATE FS [Suspect]
     Dates: start: 20040422
  11. KOGENATE FS [Suspect]
     Dates: start: 20040424
  12. KOGENATE FS [Suspect]
     Dates: start: 20040428
  13. KOGENATE FS [Suspect]
     Dates: start: 20040503
  14. KOGENATE FS [Suspect]
     Dates: start: 20040506

REACTIONS (7)
  - DRUG INEFFECTIVE [None]
  - HAEMATOMA [None]
  - LIMB INJURY [None]
  - MEDICATION ERROR [None]
  - PAIN [None]
  - PHARMACEUTICAL PRODUCT COMPLAINT [None]
  - SWELLING [None]
